FAERS Safety Report 6045715-7 (Version None)
Quarter: 2009Q1

REPORT INFORMATION
  Report Type: 
  Country: None (occurrence: None)
  Receive Date: 20090121
  Receipt Date: 20090112
  Transmission Date: 20090719
  Serious: Yes (Other)
  Sender: FDA-Public Use
  Company Number: JP-PFIZER INC-2009155291

PATIENT

DRUGS (2)
  1. IRINOTECAN HCL [Suspect]
     Indication: METASTATIC GASTRIC CANCER
  2. CISPLATIN [Suspect]
     Indication: METASTATIC GASTRIC CANCER

REACTIONS (3)
  - RENAL DISORDER [None]
  - RENAL FAILURE [None]
  - TUMOUR LYSIS SYNDROME [None]
